FAERS Safety Report 8229863-9 (Version None)
Quarter: 2012Q1

REPORT INFORMATION
  Report Type: 
  Country: None (occurrence: None)
  Receive Date: 20120323
  Receipt Date: 20120316
  Transmission Date: 20120608
  Serious: Yes (Other)
  Sender: FDA-Public Use
  Company Number: AR-AMGEN-ARGSP2011025199

PATIENT
  Age: 46 Year
  Sex: Female

DRUGS (4)
  1. PANTOPRAZOLE [Concomitant]
     Dosage: UNK
  2. ENBREL [Suspect]
     Indication: RHEUMATOID ARTHRITIS
     Dosage: 50 MG, WEEKLY
     Route: 058
     Dates: start: 20070412, end: 20111201
  3. METHOTREXATE [Concomitant]
     Dosage: UNK
     Dates: end: 20101201
  4. LEVOTHYROXINE SODIUM [Concomitant]
     Dosage: UNK
     Dates: end: 20101201

REACTIONS (6)
  - THYROID NEOPLASM [None]
  - ARTHRALGIA [None]
  - INFLUENZA [None]
  - LIMB DISCOMFORT [None]
  - NECK PAIN [None]
  - BRONCHITIS [None]
